FAERS Safety Report 23577221 (Version 4)
Quarter: 2024Q2

REPORT INFORMATION
  Report Type: Spontaneous
  Country: FR (occurrence: FR)
  Receive Date: 20240228
  Receipt Date: 20240528
  Transmission Date: 20240716
  Serious: Yes (Hospitalization, Other)
  Sender: FDA-Public Use
  Company Number: FR-BAYER-2019-070188

PATIENT
  Sex: Female
  Weight: 56 kg

DRUGS (5)
  1. ZOLPIDEM [Suspect]
     Active Substance: ZOLPIDEM TARTRATE
     Indication: Product used for unknown indication
     Dosage: UNK
     Route: 065
     Dates: start: 2020
  2. CYPROTERONE ACETATE [Suspect]
     Active Substance: CYPROTERONE ACETATE
     Indication: Hirsutism
     Dosage: UNK
     Route: 065
     Dates: start: 20100614, end: 201310
  3. CYPROTERONE ACETATE [Suspect]
     Active Substance: CYPROTERONE ACETATE
     Dosage: UNK
     Route: 048
     Dates: start: 20120730, end: 201605
  4. CYPROTERONE ACETATE [Suspect]
     Active Substance: CYPROTERONE ACETATE
     Dosage: UNK
     Route: 065
     Dates: end: 201609
  5. CLOMIPRAMINE [Concomitant]
     Active Substance: CLOMIPRAMINE
     Dosage: UNK
     Route: 065
     Dates: start: 2019

REACTIONS (31)
  - Meningioma [Unknown]
  - Quadrantanopia [Unknown]
  - Epilepsy [Unknown]
  - Brain herniation [Unknown]
  - Papilloedema [Unknown]
  - Brain oedema [Unknown]
  - Hemiparesis [Unknown]
  - Hemihypoaesthesia [Unknown]
  - Hemianopia homonymous [Unknown]
  - Muscle contracture [Unknown]
  - Visual field defect [Unknown]
  - Spinal pain [Unknown]
  - Pain in extremity [Unknown]
  - Scar [Unknown]
  - Neck pain [Unknown]
  - Asthenopia [Unknown]
  - Osteitis [Unknown]
  - Road traffic accident [Unknown]
  - Gait disturbance [Not Recovered/Not Resolved]
  - Visual impairment [Not Recovered/Not Resolved]
  - Fatigue [Not Recovered/Not Resolved]
  - Tremor [Unknown]
  - Muscular weakness [Unknown]
  - Headache [Not Recovered/Not Resolved]
  - Dizziness [Not Recovered/Not Resolved]
  - Speech disorder [Unknown]
  - Amenorrhoea [Unknown]
  - Urinary tract infection [Unknown]
  - Breast pain [Unknown]
  - Acne [Unknown]
  - Weight increased [Unknown]

NARRATIVE: CASE EVENT DATE: 20131002
